FAERS Safety Report 17293578 (Version 2)
Quarter: 2020Q1

REPORT INFORMATION
  Report Type: Report from Study
  Country: NL (occurrence: NL)
  Receive Date: 20200121
  Receipt Date: 20200129
  Transmission Date: 20200409
  Serious: Yes (Other)
  Sender: FDA-Public Use
  Company Number: NL-AMGEN-NLDSL2019064274

PATIENT
  Age: 77 Year
  Sex: Male

DRUGS (9)
  1. XGEVA [Suspect]
     Active Substance: DENOSUMAB
     Dosage: UNK
     Route: 065
  2. CALCIUM [Suspect]
     Active Substance: CALCIUM
     Indication: PRODUCT USED FOR UNKNOWN INDICATION
     Route: 065
  3. GOSERELIN [Concomitant]
     Active Substance: GOSERELIN
     Dosage: 10.8 MILLIGRAM, 1X3M1INJ
  4. XGEVA [Suspect]
     Active Substance: DENOSUMAB
     Dosage: UNK
     Route: 065
  5. ENALAPRIL [Concomitant]
     Active Substance: ENALAPRIL
     Dosage: 20 MILLIGRAM, QD
  6. XGEVA [Suspect]
     Active Substance: DENOSUMAB
     Indication: PROPHYLAXIS
     Dosage: 120 MILLIGRAM PER 1.7 ML, Q4WK
     Route: 065
     Dates: start: 20190411
  7. GOSERELIN [Concomitant]
     Active Substance: GOSERELIN
     Dosage: 8 MILLIGRAM,1X PER 3M 1 DOSE
  8. BETAMETHASON [BETAMETHASONE] [Concomitant]
     Active Substance: BETAMETHASONE
     Dosage: 0.5 MILLIGRAM PER GRAM, QD
  9. CALCIUM CARBONATE;COLECALCIFEROL [Concomitant]
     Active Substance: CALCIUM CARBONATE\CHOLECALCIFEROL
     Dosage: 1.25G/800IE (500MG CA), QD

REACTIONS (6)
  - Erythema [Recovered/Resolved]
  - Skin irritation [Recovered/Resolved]
  - Blood calcium decreased [Unknown]
  - Gastrointestinal motility disorder [Unknown]
  - Limb operation [Unknown]
  - Eyelid thickening [Recovered/Resolved]

NARRATIVE: CASE EVENT DATE: 2019
